FAERS Safety Report 15542311 (Version 1)
Quarter: 2018Q4

REPORT INFORMATION
  Report Type: Spontaneous
  Country: US (occurrence: US)
  Receive Date: 20181023
  Receipt Date: 20181023
  Transmission Date: 20190205
  Serious: Yes (Hospitalization, Other)
  Sender: FDA-Public Use
  Company Number: US-PFIZER INC-2018418720

PATIENT
  Age: 81 Year
  Sex: Female

DRUGS (2)
  1. DETROL [Suspect]
     Active Substance: TOLTERODINE TARTRATE
     Dosage: 3 MG, UNK
  2. DETROL [Suspect]
     Active Substance: TOLTERODINE TARTRATE
     Indication: INCONTINENCE
     Dosage: 2 MG, UNK

REACTIONS (5)
  - Coma [Unknown]
  - Faecaloma [Unknown]
  - Parkinsonism [Unknown]
  - Drug effect incomplete [Unknown]
  - Blood pressure decreased [Unknown]
